FAERS Safety Report 7537991-6 (Version None)
Quarter: 2011Q2

REPORT INFORMATION
  Report Type: 
  Country: None (occurrence: None)
  Receive Date: 20110609
  Receipt Date: 20110529
  Transmission Date: 20111010
  Serious: Yes (Other)
  Sender: FDA-Public Use
  Company Number: TW-BAYER-2011-047166

PATIENT
  Age: 42 Year
  Sex: Female
  Weight: 46 kg

DRUGS (2)
  1. IBUPROFEN [Suspect]
     Indication: HEADACHE
     Dosage: 1600 MG, QD
  2. ACETAMINOPHEN [Suspect]
     Indication: HEADACHE
     Dosage: 2000 MG, QD

REACTIONS (1)
  - MIGRAINE [None]
